FAERS Safety Report 24117220 (Version 1)
Quarter: 2024Q3

REPORT INFORMATION
  Report Type: Spontaneous
  Country: GB (occurrence: GB)
  Receive Date: 20240722
  Receipt Date: 20240722
  Transmission Date: 20241016
  Serious: Yes (Other)
  Sender: SANDOZ
  Company Number: GB-MHRA-TPP32928293C10511216YC1721312444200

PATIENT
  Age: 50 Year
  Sex: Female
  Weight: 68 kg

DRUGS (10)
  1. CLARITHROMYCIN [Suspect]
     Active Substance: CLARITHROMYCIN
     Indication: Ill-defined disorder
     Route: 065
     Dates: start: 20240718
  2. AMOXICILLIN [Concomitant]
     Active Substance: AMOXICILLIN
     Indication: Ill-defined disorder
     Dosage: ONE CAPSULE THREE TIMES A DAY (ANTIBIOTIC)
     Route: 065
     Dates: start: 20240718
  3. CLARITHROMYCIN [Concomitant]
     Active Substance: CLARITHROMYCIN
     Indication: Ill-defined disorder
     Dosage: ONE TABLET TWICE A DAY (ANTIBIOTIC)
     Route: 065
     Dates: start: 20240715
  4. DALTEPARIN [Concomitant]
     Active Substance: DALTEPARIN
     Indication: Ill-defined disorder
     Route: 065
     Dates: start: 20240618
  5. DYMISTA [Concomitant]
     Active Substance: AZELASTINE HYDROCHLORIDE\FLUTICASONE PROPIONATE
     Indication: Ill-defined disorder
     Dosage: ONE SPRAY SNIFFED IN EACH NOSTRIL TWICE A DAY (...
     Route: 065
     Dates: start: 20230905, end: 20240626
  6. Femseven [Concomitant]
     Indication: Ill-defined disorder
     Dosage: CHANGE ONE PATCH EVERY 7 DAYS
     Route: 065
     Dates: start: 20230920
  7. FLUOXETINE [Concomitant]
     Active Substance: FLUOXETINE HYDROCHLORIDE
     Indication: Ill-defined disorder
     Dosage: USE AS DIRECTED
     Route: 065
     Dates: start: 20230905
  8. ALBUTEROL [Concomitant]
     Active Substance: ALBUTEROL
     Indication: Ill-defined disorder
     Dosage: 2 PUFFS FOUR TIMES A DAY WHEN REQUIRED
     Route: 065
     Dates: start: 20230905
  9. FLUTICASONE PROPIONATE\SALMETEROL XINAFOATE [Concomitant]
     Active Substance: FLUTICASONE PROPIONATE\SALMETEROL XINAFOATE
     Indication: Ill-defined disorder
     Dosage: INHALE 2 DOSES TWICE DAILY
     Route: 065
     Dates: start: 20230905
  10. UTROGESTAN [Concomitant]
     Active Substance: PROGESTERONE
     Indication: Ill-defined disorder
     Dosage: ONE CAPSULE DAILY BEFORE BED ON AN EMPTY STOMACH
     Route: 065
     Dates: start: 20240405

REACTIONS (2)
  - Arthralgia [Recovering/Resolving]
  - Rash pruritic [Recovering/Resolving]

NARRATIVE: CASE EVENT DATE: 20240718
